FAERS Safety Report 20128016 (Version 1)
Quarter: 2021Q4

REPORT INFORMATION
  Report Type: Spontaneous
  Country: US (occurrence: None)
  Receive Date: 20211129
  Receipt Date: 20211129
  Transmission Date: 20220303
  Serious: No
  Sender: FDA-Public Use
  Company Number: US-ROCHE-2710417

PATIENT
  Age: 74 Year
  Sex: Male

DRUGS (4)
  1. HERCEPTIN [Suspect]
     Active Substance: TRASTUZUMAB
     Indication: Extramammary Paget^s disease
     Dosage: SUBSEQUENT DOSE
     Route: 042
     Dates: start: 20171027, end: 201909
  2. HERCEPTIN [Suspect]
     Active Substance: TRASTUZUMAB
     Dosage: INITIAL BOLUS DOSE
     Route: 040
  3. PERJETA [Suspect]
     Active Substance: PERTUZUMAB
     Indication: Extramammary Paget^s disease
     Route: 042
     Dates: start: 20171027, end: 201909
  4. PERJETA [Suspect]
     Active Substance: PERTUZUMAB
     Dosage: INITIAL BOLUS DOSE
     Route: 040

REACTIONS (4)
  - Intentional product use issue [Unknown]
  - Hypoacusis [Unknown]
  - Drug resistance [Unknown]
  - Off label use [Unknown]

NARRATIVE: CASE EVENT DATE: 20171027
